FAERS Safety Report 8556759-5 (Version None)
Quarter: 2012Q3

REPORT INFORMATION
  Report Type: 
  Country: None (occurrence: None)
  Receive Date: 20120801
  Receipt Date: 20120723
  Transmission Date: 20120928
  Serious: Yes (Hospitalization)
  Sender: FDA-Public Use
  Company Number: US-BAYER-2012-015075

PATIENT
  Age: 40 Year
  Sex: Female
  Weight: 72.698 kg

DRUGS (4)
  1. YASMIN [Suspect]
     Indication: MENSTRUAL CYCLE MANAGEMENT
     Dosage: UNK
     Dates: start: 20050927, end: 20060118
  2. LIPITOR [Concomitant]
     Indication: HYPERLIPIDAEMIA
  3. YASMIN [Suspect]
     Dosage: UNK
     Dates: start: 20060713, end: 20061010
  4. YAZ [Suspect]
     Indication: MENSTRUAL CYCLE MANAGEMENT
     Dosage: UNK
     Dates: start: 20061010, end: 20080317

REACTIONS (4)
  - PAIN [None]
  - BILIARY DYSKINESIA [None]
  - MYOCARDIAL INFARCTION [None]
  - INJURY [None]
